FAERS Safety Report 5306306-6 (Version None)
Quarter: 2007Q2

REPORT INFORMATION
  Report Type: 
  Country: None (occurrence: None)
  Receive Date: 20070424
  Receipt Date: 20070418
  Transmission Date: 20071010
  Serious: Yes (Hospitalization)
  Sender: FDA-Public Use
  Company Number: US-ABBOTT-07P-163-0362989-00

PATIENT
  Sex: Male
  Weight: 109 kg

DRUGS (4)
  1. HUMIRA [Suspect]
     Indication: PSORIASIS
     Route: 058
     Dates: start: 20060103
  2. HUMIRA [Suspect]
     Indication: PSORIATIC ARTHROPATHY
  3. VICODIN [Concomitant]
     Indication: DRUG USE FOR UNKNOWN INDICATION
  4. ALPRAZOLAM [Concomitant]
     Indication: DRUG USE FOR UNKNOWN INDICATION

REACTIONS (3)
  - EAR DISCOMFORT [None]
  - FALL [None]
  - LOWER LIMB FRACTURE [None]
